FAERS Safety Report 10882444 (Version 1)
Quarter: 2015Q1

REPORT INFORMATION
  Report Type: Spontaneous
  Country: GB (occurrence: None)
  Receive Date: 20150226
  Receipt Date: 20150226
  Transmission Date: 20150721
  Serious: Yes (Hospitalization)
  Sender: FDA-Public Use
  Company Number: GB-H14001-15-00262

PATIENT
  Age: 66 Year
  Sex: Male

DRUGS (5)
  1. CIPROFLOXACIN. [Suspect]
     Active Substance: CIPROFLOXACIN
     Indication: ENDOCARDITIS
     Dosage: 800 MG (400 MG,2 IN 1 D),INTRAVENOUS (NOT OTHERWISE SPECIFIED)
     Route: 042
     Dates: start: 20150201, end: 20150201
  2. ASPIRIN(ACETYLSALICYLIC ACID)(UNKNOWN)(ACETYLSALICYLIC ACID) [Concomitant]
  3. RANITIDINE(RANITIDINE)(UNKNOWN)(RANITIDINE) [Concomitant]
  4. BISOPROLOL(BISOPROLOL)(UNKNOWN)(BISOPROLOL) [Concomitant]
  5. FLUCONAZOLE(FLUCONAZOLE)(UNKNOWN)(FLUCONAZOLE) [Concomitant]

REACTIONS (2)
  - Acute generalised exanthematous pustulosis [None]
  - Drug reaction with eosinophilia and systemic symptoms [None]

NARRATIVE: CASE EVENT DATE: 20150201
